FAERS Safety Report 21775800 (Version 2)
Quarter: 2023Q1

REPORT INFORMATION
  Report Type: Spontaneous
  Country: JP (occurrence: JP)
  Receive Date: 20221226
  Receipt Date: 20230126
  Transmission Date: 20230417
  Serious: Yes (Death, Hospitalization)
  Sender: FDA-Public Use
  Company Number: JP-CHUGAI-2022051030

PATIENT
  Age: 39 Year
  Sex: Male

DRUGS (15)
  1. PULMOZYME [Suspect]
     Active Substance: DORNASE ALFA
     Indication: Cystic fibrosis
     Dosage: UNK
     Route: 055
     Dates: start: 20220304, end: 2022
  2. PULMOZYME [Suspect]
     Active Substance: DORNASE ALFA
     Route: 055
     Dates: start: 20220707, end: 20221020
  3. CLARITHROMYCIN [Suspect]
     Active Substance: CLARITHROMYCIN
     Indication: Product used for unknown indication
     Dosage: 800 MILLIGRAM, BID(MORNING, EVENING)
     Route: 048
     Dates: start: 20220707, end: 20221020
  4. CARBOCYSTEINE [Suspect]
     Active Substance: CARBOCYSTEINE
     Indication: Product used for unknown indication
     Dosage: 1000 MILLIGRAM, BID(MORNING, EVENING)
     Route: 048
     Dates: start: 20220707, end: 20221020
  5. AMBROXOL HYDROCHLORIDE [Suspect]
     Active Substance: AMBROXOL HYDROCHLORIDE
     Indication: Product used for unknown indication
     Dosage: 45 MILLIGRAM, QD(MORNING)
     Route: 048
     Dates: start: 20220707, end: 20221020
  6. DULOXETINE [Suspect]
     Active Substance: DULOXETINE
     Indication: Product used for unknown indication
     Dosage: 20 MILLIGRAM, QD(EVENING)
     Route: 048
     Dates: start: 20220707, end: 20221016
  7. TULOBUTEROL [Suspect]
     Active Substance: TULOBUTEROL
     Indication: Product used for unknown indication
     Dosage: 2 MILLIGRAM, QD(EVENING)
     Route: 062
     Dates: start: 20220707, end: 20221016
  8. SPIRIVA [Suspect]
     Active Substance: TIOTROPIUM BROMIDE MONOHYDRATE
     Indication: Product used for unknown indication
     Dosage: 1 DOSAGE FORM, QD
     Route: 055
     Dates: start: 20220707, end: 20221016
  9. ROZEREM [Suspect]
     Active Substance: RAMELTEON
     Indication: Product used for unknown indication
     Dosage: 8 MILLIGRAM, QD(EVENING)
     Route: 048
     Dates: start: 20220707, end: 20221016
  10. TOBI [Suspect]
     Active Substance: TOBRAMYCIN
     Indication: Cystic fibrosis
     Dosage: 2 DOSAGE FORM, BID
     Route: 055
     Dates: start: 20220707, end: 20221016
  11. TOBI [Suspect]
     Active Substance: TOBRAMYCIN
     Indication: Respiratory failure
  12. MEROPENEM [Concomitant]
     Active Substance: MEROPENEM
     Dosage: UNK
     Route: 065
  13. CEFTAZIDIME [Concomitant]
     Active Substance: CEFTAZIDIME
     Dosage: UNK
     Route: 065
  14. ALDREB [Concomitant]
     Dosage: UNK
     Route: 065
  15. AZITHROMYCIN DIHYDRATE [Concomitant]
     Active Substance: AZITHROMYCIN DIHYDRATE
     Dosage: UNK
     Route: 065

REACTIONS (2)
  - Cystic fibrosis [Fatal]
  - Respiratory failure [Fatal]
